APPROVED DRUG PRODUCT: VOLTAREN
Active Ingredient: DICLOFENAC SODIUM
Strength: 0.1%
Dosage Form/Route: SOLUTION/DROPS;OPHTHALMIC
Application: N020037 | Product #001
Applicant: NOVARTIS PHARMACEUTICALS CORP
Approved: Mar 28, 1991 | RLD: Yes | RS: No | Type: DISCN